FAERS Safety Report 9151282 (Version 1)
Quarter: 2013Q1

REPORT INFORMATION
  Report Type: Spontaneous
  Country: GB (occurrence: None)
  Receive Date: 20130201
  Receipt Date: 20130201
  Transmission Date: 20140127
  Serious: Yes (Other)
  Sender: FDA-Public Use
  Company Number: 2013AP000773

PATIENT
  Age: 4 Year
  Sex: Male

DRUGS (1)
  1. OMEPRAZOLE (OMEPRAZOLE) [Suspect]
     Route: 048
     Dates: start: 20120925, end: 20121116

REACTIONS (3)
  - Hypersomnia [None]
  - Hyperhidrosis [None]
  - Urinary incontinence [None]
